FAERS Safety Report 6518388-4 (Version None)
Quarter: 2009Q4

REPORT INFORMATION
  Report Type: 
  Country: None (occurrence: None)
  Receive Date: 20091224
  Receipt Date: 20091209
  Transmission Date: 20100525
  Serious: Yes (Hospitalization)
  Sender: FDA-Public Use
  Company Number: ES-GENENTECH-292958

PATIENT
  Age: 19 Year
  Sex: Female
  Weight: 97.1 kg

DRUGS (1)
  1. XOLAIR [Suspect]
     Indication: ASTHMA
     Dosage: 300 MG, 1/MONTH
     Route: 058

REACTIONS (5)
  - DRUG EXPOSURE DURING PREGNANCY [None]
  - HEADACHE [None]
  - MUSCULOSKELETAL PAIN [None]
  - PYREXIA [None]
  - SERUM SICKNESS-LIKE REACTION [None]
